FAERS Safety Report 8561014-3 (Version None)
Quarter: 2012Q3

REPORT INFORMATION
  Report Type: 
  Country: None (occurrence: None)
  Receive Date: 20120802
  Receipt Date: 20110706
  Transmission Date: 20120928
  Serious: Yes (Other)
  Sender: FDA-Public Use
  Company Number: US-BRISTOL-MYERS SQUIBB COMPANY-15879026

PATIENT
  Sex: Male

DRUGS (3)
  1. REYATAZ [Suspect]
  2. TRUVADA [Suspect]
  3. NORVIR [Suspect]

REACTIONS (1)
  - DRUG INEFFECTIVE [None]
